FAERS Safety Report 21676672 (Version 1)
Quarter: 2022Q4

REPORT INFORMATION
  Report Type: Report from Study
  Country: MX (occurrence: MX)
  Receive Date: 20221202
  Receipt Date: 20221202
  Transmission Date: 20230113
  Serious: Yes (Death)
  Sender: FDA-Public Use
  Company Number: MX-ABBVIE-4221495

PATIENT
  Age: 79 Year
  Sex: Female

DRUGS (1)
  1. VENCLEXTA [Suspect]
     Active Substance: VENETOCLAX
     Indication: Acute myeloid leukaemia
     Dosage: 400 MILLIGRAM??DRUG END DATE: 2022
     Route: 048
     Dates: start: 20220424

REACTIONS (1)
  - Death [Fatal]

NARRATIVE: CASE EVENT DATE: 20221126
